FAERS Safety Report 24328536 (Version 3)
Quarter: 2024Q4

REPORT INFORMATION
  Report Type: Spontaneous
  Country: FR (occurrence: FR)
  Receive Date: 20240917
  Receipt Date: 20241218
  Transmission Date: 20250114
  Serious: Yes (Hospitalization, Other)
  Sender: BRISTOL-MYERS SQUIBB COMPANY
  Company Number: None

PATIENT
  Age: 44 Year
  Sex: Female

DRUGS (2)
  1. KRAZATI [Suspect]
     Active Substance: ADAGRASIB
     Indication: Lung carcinoma cell type unspecified stage IV
     Dosage: 600 MG MORNING AND EVENING
     Route: 048
     Dates: start: 202406, end: 20240817
  2. KRAZATI [Suspect]
     Active Substance: ADAGRASIB
     Dosage: 400 MG MORNING AND EVENING
     Route: 048

REACTIONS (7)
  - Bone marrow failure [Recovered/Resolved]
  - Agranulocytosis [Recovered/Resolved]
  - Rash morbilliform [Recovered/Resolved]
  - Hepatic cytolysis [Unknown]
  - Hypokalaemia [Unknown]
  - Dizziness [Unknown]
  - Bone pain [Unknown]

NARRATIVE: CASE EVENT DATE: 20240809
